FAERS Safety Report 4729419-6 (Version None)
Quarter: 2005Q3

REPORT INFORMATION
  Report Type: 
  Country: None (occurrence: None)
  Receive Date: 20050721
  Receipt Date: 20050614
  Transmission Date: 20060218
  Serious: No
  Sender: FDA-Public Use
  Company Number: 2005SP001403

PATIENT
  Age: 91 Year
  Sex: Female

DRUGS (7)
  1. LUNESTA [Suspect]
     Dosage: 1.5 MG;HS;ORAL;  3 MG;HS;ORAL
     Route: 048
  2. ISORDIL [Concomitant]
  3. NEXIUM [Concomitant]
  4. UNSPECIFIED THYROID MEDICATION [Concomitant]
  5. HYDROCHLOROTHIAZIDE [Concomitant]
  6. PLAVIX [Concomitant]
  7. ASPIRIN [Concomitant]

REACTIONS (3)
  - DIZZINESS [None]
  - DRUG INEFFECTIVE [None]
  - MIDDLE INSOMNIA [None]
